FAERS Safety Report 15675868 (Version 2)
Quarter: 2019Q1

REPORT INFORMATION
  Report Type: Spontaneous
  Country: US (occurrence: US)
  Receive Date: 20181130
  Receipt Date: 20190129
  Transmission Date: 20190417
  Serious: No
  Sender: FDA-Public Use
  Company Number: US-TEVA-2018-US-981473

PATIENT
  Sex: Female

DRUGS (5)
  1. LOPRESSOR 50 MG [Concomitant]
  2. ZANTAC [Concomitant]
     Active Substance: RANITIDINE HYDROCHLORIDE
  3. LOSARTAN POTASSIUM AND HYDROCHLOROTHIAZIDE TABLETS 100-12.5 [Suspect]
     Active Substance: HYDROCHLOROTHIAZIDE\LOSARTAN POTASSIUM
     Indication: BLOOD PRESSURE ABNORMAL
     Dosage: 1DF: HYDROCHLOROTHIAZIDE 100 MG+ LOSARTAN 12.5 MG
     Route: 065
     Dates: start: 2013
  4. NEXIUM [Concomitant]
     Active Substance: ESOMEPRAZOLE MAGNESIUM
     Indication: DYSPEPSIA
  5. LOSARTAN POTASSIUM AND HYDROCHLOROTHIAZIDE TABLETS 100-12.5 [Suspect]
     Active Substance: HYDROCHLOROTHIAZIDE\LOSARTAN POTASSIUM
     Dosage: 1DF: HYDROCHLOROTHIAZIDE 100 MG+ LOSARTAN 12.5 MG
     Route: 065
     Dates: start: 2016

REACTIONS (1)
  - Cough [Recovering/Resolving]

NARRATIVE: CASE EVENT DATE: 2017
